FAERS Safety Report 6086991-4 (Version None)
Quarter: 2009Q1

REPORT INFORMATION
  Report Type: 
  Country: None (occurrence: None)
  Receive Date: 20090223
  Receipt Date: 20090213
  Transmission Date: 20090719
  Serious: Yes (Hospitalization, Other)
  Sender: FDA-Public Use
  Company Number: CA-BIOGENIDEC-2009BI005127

PATIENT
  Age: 60 Year
  Sex: Male

DRUGS (1)
  1. TYSABRI [Suspect]
     Indication: MULTIPLE SCLEROSIS
     Route: 042
     Dates: start: 20080304

REACTIONS (4)
  - HAEMATOMA [None]
  - HYPERAESTHESIA [None]
  - PARALYSIS [None]
  - STAPHYLOCOCCAL ABSCESS [None]
